FAERS Safety Report 9731610 (Version 1)
Quarter: 2013Q4

REPORT INFORMATION
  Report Type: Spontaneous
  Country: GB (occurrence: None)
  Receive Date: 20131203
  Receipt Date: 20131203
  Transmission Date: 20140711
  Serious: Yes (Death)
  Sender: FDA-Public Use
  Company Number: AUR-APL-2013-09927

PATIENT
  Age: 35 Year
  Sex: Male
  Weight: 79 kg

DRUGS (11)
  1. PAROXETINE (PAROXETINE) [Suspect]
     Indication: DEPRESSED MOOD
     Route: 048
  2. DIAZEPAM (DIAZEPAM) [Suspect]
     Indication: ANXIETY
     Route: 048
     Dates: end: 2007
  3. CO-CODAMOL (PANADEINE CO) [Concomitant]
  4. LANSOPRAZOLE (LANSOPRAZOLE) [Concomitant]
  5. PROCYCLIDINE (PROCYCLIDINE) [Concomitant]
  6. SENNA PLUS (SENNA ALEXANDRINA) [Concomitant]
  7. EPILIM (VALPROATE SODIUM) [Suspect]
     Indication: PRODUCT USED FOR UNKNOWN INDICATION
     Dosage: 400 MG (200 MG, 2 IN 1 D)
     Route: 048
     Dates: start: 2007
  8. ETHANOL (ETHANOL) (UNKNOWN) (ETHANOL) [Suspect]
     Indication: PRODUCT USED FOR UNKNOWN INDICATION
     Dosage: ORAL
     Route: 048
  9. HYOSCINE [Suspect]
     Indication: SALIVARY HYPERSECRETION
     Dosage: 600 MCG (300 MCG 2 IN 1)
     Route: 048
  10. ZAPONEX (CLOZAPINE) [Suspect]
     Indication: SCHIZOPHRENIA
     Route: 048
     Dates: start: 20041112, end: 200702
  11. ZOPICLONE (ZOPICLONE) [Suspect]
     Indication: INSOMNIA
     Route: 048
     Dates: start: 2007

REACTIONS (10)
  - Back pain [None]
  - Lower respiratory tract infection [None]
  - Tongue biting [None]
  - Aortic arteriosclerosis [None]
  - Pulmonary oedema [None]
  - Increased upper airway secretion [None]
  - Gastritis erosive [None]
  - Toxicity to various agents [None]
  - Drug interaction [None]
  - Alcohol interaction [None]
